FAERS Safety Report 5315176-1 (Version None)
Quarter: 2007Q2

REPORT INFORMATION
  Report Type: 
  Country: None (occurrence: None)
  Receive Date: 20070427
  Receipt Date: 20070416
  Transmission Date: 20071010
  Serious: Yes (Hospitalization)
  Sender: FDA-Public Use
  Company Number: 310006M07FRA

PATIENT
  Age: 37 Year
  Sex: Female
  Weight: 70 kg

DRUGS (1)
  1. GONAL-F [Suspect]
     Indication: IN VITRO FERTILISATION

REACTIONS (5)
  - ANTI FACTOR X ANTIBODY POSITIVE [None]
  - FIBRIN D DIMER INCREASED [None]
  - HYPOCAPNIA [None]
  - PLEURAL EFFUSION [None]
  - PULMONARY EMBOLISM [None]
